FAERS Safety Report 18633432 (Version 2)
Quarter: 2020Q4

REPORT INFORMATION
  Report Type: Spontaneous
  Country: CN (occurrence: CN)
  Receive Date: 20201218
  Receipt Date: 20201229
  Transmission Date: 20210114
  Serious: Yes (Other)
  Sender: FDA-Public Use
  Company Number: CN-009507513-2012CHN004320

PATIENT
  Age: 32 Year
  Sex: Female
  Weight: 65 kg

DRUGS (3)
  1. PUREGON (FOLLITROPIN BETA) [Suspect]
     Active Substance: FOLLITROPIN
     Dosage: 300 INTERNATIONAL UNIT (IU), QD, 10TH TIME
     Route: 058
     Dates: start: 20201205, end: 20201205
  2. PUREGON (FOLLITROPIN BETA) [Suspect]
     Active Substance: FOLLITROPIN
     Dosage: 300 INTERNATIONAL UNIT (IU), QD
     Route: 058
     Dates: start: 20201206
  3. PUREGON (FOLLITROPIN BETA) [Suspect]
     Active Substance: FOLLITROPIN
     Indication: IN VITRO FERTILISATION
     Dosage: 300 INTERNATIONAL UNIT, QD
     Route: 058
     Dates: start: 20201126, end: 20201126

REACTIONS (7)
  - Hyperhidrosis [Recovering/Resolving]
  - Hypersensitivity [Recovered/Resolved]
  - Asthenia [Recovering/Resolving]
  - Cyanosis [Recovered/Resolved]
  - Palpitations [Recovering/Resolving]
  - Tinnitus [Recovering/Resolving]
  - Vertigo [Recovering/Resolving]

NARRATIVE: CASE EVENT DATE: 20201205
